FAERS Safety Report 4675453-4 (Version None)
Quarter: 2005Q2

REPORT INFORMATION
  Report Type: 
  Country: None (occurrence: None)
  Receive Date: 20050527
  Receipt Date: 20050311
  Transmission Date: 20051028
  Serious: No
  Sender: FDA-Public Use
  Company Number: US-BRISTOL-MYERS SQUIBB COMPANY-12895678

PATIENT
  Age: 14 Year
  Sex: Male

DRUGS (5)
  1. ABILIFY [Suspect]
     Indication: AUTISM SPECTRUM DISORDER
     Route: 048
     Dates: start: 20050104, end: 20050209
  2. ABILIFY [Suspect]
     Indication: PHENYLKETONURIA
     Route: 048
     Dates: start: 20050104, end: 20050209
  3. ABILIFY [Suspect]
     Indication: AGGRESSION
     Route: 048
     Dates: start: 20050104, end: 20050209
  4. SERZONE [Concomitant]
  5. CLONIDINE [Concomitant]

REACTIONS (5)
  - COGNITIVE DISORDER [None]
  - DROOLING [None]
  - MOANING [None]
  - PSYCHOMOTOR RETARDATION [None]
  - TREMOR [None]
